FAERS Safety Report 6764605-5 (Version None)
Quarter: 2010Q2

REPORT INFORMATION
  Report Type: 
  Country: None (occurrence: None)
  Receive Date: 20100610
  Receipt Date: 20100604
  Transmission Date: 20101027
  Serious: Yes (Death)
  Sender: FDA-Public Use
  Company Number: RU-BAYER-200931167GPV

PATIENT
  Age: 47 Year
  Sex: Female

DRUGS (3)
  1. MIRENA [Suspect]
     Indication: ENDOMETRIAL HYPERPLASIA
     Route: 015
     Dates: start: 20070530, end: 20090720
  2. UTROGECTAN [Concomitant]
     Dates: start: 20081114, end: 20090720
  3. ESTROGEL [Concomitant]
     Dates: start: 20090605, end: 20090720

REACTIONS (1)
  - SUDDEN DEATH [None]
